FAERS Safety Report 18609201 (Version 1)
Quarter: 2020Q4

REPORT INFORMATION
  Report Type: Spontaneous
  Country: US (occurrence: US)
  Receive Date: 20201214
  Receipt Date: 20201214
  Transmission Date: 20210114
  Serious: No
  Sender: FDA-Public Use
  Company Number: US-RECORDATI RARE DISEASES-2102929

PATIENT
  Age: 46 Year
  Sex: Female

DRUGS (1)
  1. SIGNIFOR LAR [Suspect]
     Active Substance: PASIREOTIDE PAMOATE
     Indication: PITUITARY-DEPENDENT CUSHING^S SYNDROME
     Dates: start: 2019

REACTIONS (6)
  - Abdominal pain [Unknown]
  - Groin pain [Unknown]
  - Nail growth abnormal [Unknown]
  - Foot deformity [Unknown]
  - Tooth fracture [Unknown]
  - Depression [Unknown]
